FAERS Safety Report 5512606-7 (Version None)
Quarter: 2007Q4

REPORT INFORMATION
  Report Type: 
  Country: None (occurrence: None)
  Receive Date: 20071107
  Receipt Date: 20071024
  Transmission Date: 20080405
  Serious: Yes (Hospitalization, Other)
  Sender: FDA-Public Use
  Company Number: PAR_01783_2007

PATIENT
  Age: 3 Year
  Sex: Male

DRUGS (1)
  1. IBUPROFEN SYRUP [Suspect]
     Indication: EAR PAIN
     Dosage: DF-SEVERAL PEDIATRIC DOSES

REACTIONS (6)
  - ATAXIA [None]
  - CONVULSION [None]
  - DIPLOPIA [None]
  - DRUG SCREEN FALSE POSITIVE [None]
  - HYPOTONIA [None]
  - VOMITING [None]
